FAERS Safety Report 18138660 (Version 1)
Quarter: 2020Q3

REPORT INFORMATION
  Report Type: Spontaneous
  Country: US (occurrence: US)
  Receive Date: 20200811
  Receipt Date: 20200811
  Transmission Date: 20201103
  Serious: Yes (Other)
  Sender: FDA-Public Use
  Company Number: None

PATIENT
  Age: 81 Year
  Sex: Male
  Weight: 81 kg

DRUGS (15)
  1. IPRATROPIUM NEB [Concomitant]
     Dates: start: 20200809
  2. ALUMINUM/MAGNESIUM HYDROXIDE [Concomitant]
     Active Substance: ALUMINUM HYDROXIDE\MAGNESIUM HYDROXIDE
     Dates: start: 20200807
  3. ZINC SULFATE 220MG CAP [Concomitant]
  4. REMDESIVIR FOR INJECTION 100 MG/VIAL [Suspect]
     Active Substance: REMDESIVIR
     Indication: COVID-19
     Route: 042
     Dates: start: 20200807, end: 20200809
  5. ENOXAPARIN 40MG INJ [Concomitant]
  6. CHOLECALCIFEROL 2000 UNIT CAP [Concomitant]
     Dates: start: 20200807
  7. DEXAMETHASONE GMG TAB [Concomitant]
     Dates: start: 20200808
  8. SENNA 17.2MG CAP [Concomitant]
     Dates: start: 20200809
  9. ASCORBIC ACID 500MG TAB [Concomitant]
     Dates: start: 20200807
  10. GUAIFENESIN 600MG TAB [Concomitant]
     Dates: start: 20200806
  11. SIMETHICONE (DIMETHICONE) [Concomitant]
     Active Substance: DIMETHICONE
     Dates: start: 20200807
  12. ALBUTEROL INHALER [Concomitant]
     Active Substance: ALBUTEROL
     Dates: start: 20200806
  13. DOCUSATE SODIUM 200MG CAP [Concomitant]
     Dates: start: 20200809
  14. TEMAZEPAM 30MG CAP [Concomitant]
     Dates: start: 20200806
  15. LIDOCAINE VISCOUS [Concomitant]
     Active Substance: LIDOCAINE HYDROCHLORIDE

REACTIONS (2)
  - Aspartate aminotransferase increased [None]
  - Alanine aminotransferase increased [None]

NARRATIVE: CASE EVENT DATE: 20200810
